FAERS Safety Report 8133394-4 (Version None)
Quarter: 2012Q1

REPORT INFORMATION
  Report Type: 
  Country: None (occurrence: None)
  Receive Date: 20120103
  Receipt Date: 20110826
  Transmission Date: 20120608
  Serious: No
  Sender: FDA-Public Use
  Company Number: AE-2011-001156

PATIENT
  Age: 55 Year
  Sex: Female
  Weight: 90.7194 kg

DRUGS (4)
  1. RIBAPAK (RIBAVIRIN) [Concomitant]
  2. PEGASYS [Concomitant]
  3. PROCRIT [Concomitant]
  4. INCIVEK [Suspect]
     Dosage: 2250 MG (750 MG,3 IN 1 D),ORAL
     Route: 048
     Dates: start: 20110824

REACTIONS (5)
  - POLLAKIURIA [None]
  - ANORECTAL DISCOMFORT [None]
  - BLOODY DISCHARGE [None]
  - DYSURIA [None]
  - MICTURITION URGENCY [None]
